FAERS Safety Report 9384777 (Version 1)
Quarter: 2013Q3

REPORT INFORMATION
  Report Type: Report from Study
  Country: US (occurrence: US)
  Receive Date: 20130705
  Receipt Date: 20130705
  Transmission Date: 20140515
  Serious: Yes (Other)
  Sender: FDA-Public Use
  Company Number: US-ABBOTT-13P-163-1112464-00

PATIENT
  Age: 65 Year
  Sex: Male

DRUGS (2)
  1. HUMIRA [Suspect]
     Indication: RHEUMATOID ARTHRITIS
     Route: 058
     Dates: start: 2010, end: 201305
  2. HUMIRA [Suspect]
     Route: 058
     Dates: start: 201306

REACTIONS (3)
  - Bone graft [Unknown]
  - Periodontal operation [Unknown]
  - White blood cell count increased [Unknown]
